FAERS Safety Report 5983767-0 (Version None)
Quarter: 2008Q4

REPORT INFORMATION
  Report Type: 
  Country: None (occurrence: None)
  Receive Date: 20081208
  Receipt Date: 20080914
  Transmission Date: 20090506
  Serious: No
  Sender: FDA-Public Use
  Company Number: US-AMGEN-KDL306791

PATIENT
  Sex: Male
  Weight: 96.2 kg

DRUGS (3)
  1. ENBREL [Suspect]
     Indication: PSORIASIS
     Route: 058
     Dates: start: 20080901
  2. NEXIUM [Concomitant]
  3. BENICAR [Concomitant]

REACTIONS (1)
  - INSOMNIA [None]
